FAERS Safety Report 24718444 (Version 1)
Quarter: 2024Q4

REPORT INFORMATION
  Report Type: Spontaneous
  Country: ES (occurrence: ES)
  Receive Date: 20241210
  Receipt Date: 20241210
  Transmission Date: 20250114
  Serious: Yes (Life-Threatening)
  Sender: TEVA
  Company Number: None

PATIENT
  Age: 40 Year
  Sex: Female

DRUGS (8)
  1. GABAPENTIN [Suspect]
     Active Substance: GABAPENTIN
     Indication: Mononeuritis
     Dosage: GABAPENTIN TEVA, EFG, 90 CAPSULES
     Route: 048
     Dates: start: 20241105
  2. OMEPRAZOLE [Concomitant]
     Active Substance: OMEPRAZOLE
     Indication: Product used for unknown indication
     Dosage: 20.0 MG A-DE ;   EFG, 56 CAPSULES; OMEPRAZOLE PENSA
     Route: 048
     Dates: start: 20240305
  3. ANAOMI [Concomitant]
     Indication: Alopecia
     Dosage: 1.0 COMP C/24 H ; 0.1 MG/0.02 MG EFG , 3 X 21 TABLETS
     Route: 048
     Dates: start: 20231025
  4. ROBAXIN [Concomitant]
     Active Substance: METHOCARBAMOL
     Indication: Muscle spasms
     Dosage: 20 TABLETS
     Route: 048
     Dates: start: 20241105, end: 20241109
  5. BISOPROLOL [Concomitant]
     Active Substance: BISOPROLOL
     Indication: Arrhythmia
     Dosage: 2.5 MG DECE ; 28 TABLETS
     Route: 048
     Dates: start: 20210225
  6. DOXIUM FUERTE [Concomitant]
     Indication: Haemorrhoids
     Dosage: 500.0 MG DECE; 60 CAPSULES
     Route: 048
     Dates: start: 20240624
  7. PARACETAMOL CINFA [Concomitant]
     Indication: Pain
     Dosage: 1.0 G DECOCE;  EFG  40 TABLETS
     Route: 048
     Dates: start: 20220915
  8. WYNZORA [Concomitant]
     Active Substance: BETAMETHASONE DIPROPIONATE\CALCIPOTRIENE
     Indication: Psoriasis
     Dosage: 1.0 APPLICATION C/24 H; 50 MICROGRAMS/G + 0.5 MG/G CREAM, 2 TUBES OF 60 G
     Route: 061
     Dates: start: 20240911

REACTIONS (1)
  - Allergic oedema [Recovered/Resolved]

NARRATIVE: CASE EVENT DATE: 20241105
